FAERS Safety Report 22619299 (Version 3)
Quarter: 2025Q2

REPORT INFORMATION
  Report Type: Spontaneous
  Country: US (occurrence: US)
  Receive Date: 20230620
  Receipt Date: 20250605
  Transmission Date: 20250716
  Serious: No
  Sender: PIERRE FABRE MEDICAMENT
  Company Number: US-PFM-2023-01301

PATIENT
  Sex: Female
  Weight: 13.3 kg

DRUGS (3)
  1. HEMANGEOL [Suspect]
     Active Substance: PROPRANOLOL HYDROCHLORIDE
     Indication: Haemangioma
     Dosage: 1.1 ML, BID (2/DAY) FOR 1 WEEK
  2. HEMANGEOL [Suspect]
     Active Substance: PROPRANOLOL HYDROCHLORIDE
     Dosage: 2.3 ML, BID (2/DAY) FOR MAINTENANCE DOSING
  3. HEMANGEOL [Suspect]
     Active Substance: PROPRANOLOL HYDROCHLORIDE
     Dosage: 5.3 ML, BID (2/DAY)

REACTIONS (2)
  - Illness [Unknown]
  - Drug hypersensitivity [Unknown]
